FAERS Safety Report 12746338 (Version 6)
Quarter: 2021Q1

REPORT INFORMATION
  Report Type: Spontaneous
  Country: US (occurrence: US)
  Receive Date: 20160915
  Receipt Date: 20210318
  Transmission Date: 20210419
  Serious: Yes (Other)
  Sender: FDA-Public Use
  Company Number: US-PFIZER INC-2016427260

PATIENT
  Age: 60 Year
  Sex: Female
  Weight: 88 kg

DRUGS (48)
  1. LYRICA [Suspect]
     Active Substance: PREGABALIN
     Indication: DIABETIC NEUROPATHY
     Dosage: 150 MG, 2X/DAY
     Route: 048
  2. FLOVENT HFA [Concomitant]
     Active Substance: FLUTICASONE PROPIONATE
     Dosage: UNK, 2X/DAY (110 MCG /ACT AEROSOL 2 PUFFS)
  3. ZYRTEC [Concomitant]
     Active Substance: CETIRIZINE HYDROCHLORIDE
     Dosage: 10 MG, 1X/DAY
  4. MELOXICAM. [Concomitant]
     Active Substance: MELOXICAM
     Dosage: 7.5 MG, 2X/DAY (EACH AM AND  PM)
  5. NIACIN. [Concomitant]
     Active Substance: NIACIN
     Dosage: 1000 MG, 1X/DAY (AT BEDTIME)
  6. PANTOPRAZOLE SODIUM. [Concomitant]
     Active Substance: PANTOPRAZOLE SODIUM
     Dosage: 40 MG, 2X/DAY (EACH AM AND PM)
  7. AERO OTIC HC [Concomitant]
     Dosage: UNK, AS NEEDED
  8. MELATONIN [Concomitant]
     Active Substance: MELATONIN
     Dosage: 0.5 MG, AS NEEDED (1 CAPSULE AT BEDTIME AS NEEDED WITH FOOD ONCE A DAY)
  9. METOPROLOL TARTRATE. [Concomitant]
     Active Substance: METOPROLOL TARTRATE
     Dosage: 50 MG, 1X/DAY (1 TABLET)
  10. GLUCOSAMINE + CHONDROITIN [Concomitant]
     Active Substance: CHONDROITIN SULFATE (BOVINE)\GLUCOSAMINE HYDROCHLORIDE
     Dosage: UNK, 2X/DAY (750 MG GLUCOSAMINE 600MG CHONDROITIN)
  11. LEVOTHYROXINE SODIUM. [Concomitant]
     Active Substance: LEVOTHYROXINE SODIUM
     Dosage: 25 UG, 1X/DAY (30?60 MIN BEFORE FOOD AND MEDS EACH AM)
  12. IRBESARTAN. [Concomitant]
     Active Substance: IRBESARTAN
     Dosage: 300 MG, 1X/DAY (EACH AM)
  13. PROBIOTIC [Concomitant]
     Active Substance: PROBIOTICS NOS
     Dosage: 1 DF, 1X/DAY (1 CAPSULE ONCE A DAY)
  14. BACTROBAN [Concomitant]
     Active Substance: MUPIROCIN\MUPIROCIN CALCIUM
     Dosage: UNK, AS NEEDED (1 APPLICATION TO AFFECTED AREA THREE TIMES A DAY AS NEEDED)
  15. ZETIA [Concomitant]
     Active Substance: EZETIMIBE
     Dosage: 10 MG, 1X/DAY (EACH PM)
  16. LORAZEPAM. [Concomitant]
     Active Substance: LORAZEPAM
     Dosage: 0.5 MG, AS NEEDED (EVERY 6 HRS)
  17. FERROUS GLUCONATE [Concomitant]
     Active Substance: FERROUS GLUCONATE
     Dosage: 325 MG, 1X/DAY [(36 FE) EACH AM]
  18. PERI?COLACE [Concomitant]
     Active Substance: CASANTHRANOL\DOCUSATE SODIUM
     Dosage: 1 DF, AS NEEDED (DOCUSATE SODIUM 50MG, SENNOSIDES 8.6 MG) (ONCE A DAY IN THE EVENING)
  19. OXYCODONE AND ACETAMINOPHEN [Concomitant]
     Active Substance: ACETAMINOPHEN\OXYCODONE HYDROCHLORIDE
     Dosage: 1 DF, AS NEEDED (10MG OXYCODONE?325 MG ACETAMINOPHEN, EVERY 6 HRS)
  20. CETIRIZINE [Concomitant]
     Active Substance: CETIRIZINE HYDROCHLORIDE
     Dosage: 10 MG, 1X/DAY (EACH PM)
  21. FLONASE [Concomitant]
     Active Substance: FLUTICASONE PROPIONATE
     Dosage: UNK, AS NEEDED (50 MCG/ACT SUSPENSION 1 SPRAY IN EACH NOSTRIL ONCE A DAY)
     Route: 045
  22. ATORVASTATIN CALCIUM. [Concomitant]
     Active Substance: ATORVASTATIN CALCIUM
     Dosage: 10 MG, ALTERNATE DAY(1/2 TABLET EVERY OTHER DAY)
  23. CELEXA [Concomitant]
     Active Substance: CITALOPRAM HYDROBROMIDE
     Dosage: UNK
  24. LYRICA [Suspect]
     Active Substance: PREGABALIN
     Dosage: 150 MG, 1X/DAY (150 MG IN MORNING AND 225 MG AT NIGHT)
     Route: 048
  25. VITAMIN D [Concomitant]
     Active Substance: VITAMIN D NOS
     Dosage: 5000 IU, UNK (EVERY OTHER WEEK)
  26. AVAPRO [Concomitant]
     Active Substance: IRBESARTAN
     Dosage: 300 MG, 1X/DAY
  27. AURO EAR DROP [Concomitant]
     Dosage: UNK
  28. LYRICA [Suspect]
     Active Substance: PREGABALIN
     Indication: NEUROPATHY PERIPHERAL
     Dosage: 75 MG, 1X/DAY (AT BEDTIME)
     Route: 048
  29. LYRICA [Suspect]
     Active Substance: PREGABALIN
     Dosage: 225 MG, 1X/DAY (150 MG IN MORNING AND 225 MG AT NIGHT)
     Route: 048
  30. PROAIR HFA [Concomitant]
     Active Substance: ALBUTEROL SULFATE
     Dosage: UNK, AS NEEDED (108  MCG/ACT AEROSOL SOLUTION 2 PUFFS EVERY 4 HRS)
  31. MAGNESIUM GLYCINATE [Concomitant]
     Active Substance: MAGNESIUM GLYCINATE
     Dosage: 100 MG, 2X/DAY
  32. PROTONIX [Concomitant]
     Active Substance: PANTOPRAZOLE SODIUM
     Dosage: 40 MG, 2X/DAY
  33. CYCLOBENZAPRINE HCL [Concomitant]
     Active Substance: CYCLOBENZAPRINE HYDROCHLORIDE
     Dosage: 10 MG, AS NEEDED (TAKE ROUTINELY FOR 3 DAYS THEN TAKE AS NEEDED)
  34. PROZAC [Concomitant]
     Active Substance: FLUOXETINE HYDROCHLORIDE
     Dosage: 20 MG, 1X/DAY (IN THE EVENING )
  35. GLUCOSAMINE + CHONDROITIN [Concomitant]
     Active Substance: CHONDROITIN SULFATE (BOVINE)\GLUCOSAMINE HYDROCHLORIDE
     Dosage: UNK, 2X/DAY (GLUCOSAMINE 1.5 AND CHONDROITIN 1.28 CHEWS AM AND PM)
  36. CRANBERRY. [Concomitant]
     Active Substance: CRANBERRY
     Dosage: 450 MG, 2X/DAY (WITH MEALS)
  37. CHLORPHENIRAMINE MALEATE. [Concomitant]
     Active Substance: CHLORPHENIRAMINE MALEATE
     Dosage: 450 MG, AS NEEDED (EVERY 6 HRS)
  38. TYLENOL [Concomitant]
     Active Substance: ACETAMINOPHEN
     Dosage: 325 MG, AS NEEDED (EVERY 6 HRS)
  39. CRANBERRY. [Concomitant]
     Active Substance: CRANBERRY
     Dosage: 25000 MG, 2X/DAY(25,000 MG AM AND PM)
  40. VITAMIN D3 [Concomitant]
     Active Substance: CHOLECALCIFEROL
     Dosage: 50000 IU, UNK (EVERY OTHER WEEK)
  41. RITALIN [Concomitant]
     Active Substance: METHYLPHENIDATE HYDROCHLORIDE
     Dosage: 10 MG, 2X/DAY
  42. VITAMIN D [Concomitant]
     Active Substance: VITAMIN D NOS
     Dosage: 50000 IU, UNK (EVERY OTHER WEEK)
  43. ASPIRIN (E.C.) [Concomitant]
     Active Substance: ASPIRIN
     Dosage: 325 MG, 1X/DAY
     Route: 048
  44. BIOTIN [Concomitant]
     Active Substance: BIOTIN
     Dosage: 5 MG, 2X/DAY (5000 MCG AM AND PM)
  45. SYSTANE BALANCE [Concomitant]
     Active Substance: PROPYLENE GLYCOL
     Dosage: 0.6 %, 2X/DAY
     Route: 047
  46. VIACTIV [Concomitant]
     Dosage: 1 DF, 2X/DAY (500MG CALCIUM CARBONATE?500UNIT COLECALCIFEROL?40MG PHYTOMENADIONE WITH A MEAL)
  47. METHYLPHENIDATE. [Concomitant]
     Active Substance: METHYLPHENIDATE
     Dosage: 20 MG, 1X/DAY ((2) EACH AM)
  48. PLAVIX [Concomitant]
     Active Substance: CLOPIDOGREL BISULFATE
     Dosage: 75 MG, 1X/DAY (EACH PM)
     Route: 048

REACTIONS (19)
  - Unresponsive to stimuli [Unknown]
  - Peripheral swelling [Unknown]
  - Anxiety [Unknown]
  - Intentional product use issue [Unknown]
  - Depressed mood [Unknown]
  - Embolism arterial [Unknown]
  - Headache [Unknown]
  - Dysarthria [Unknown]
  - Spinal pain [Recovering/Resolving]
  - Sleep disorder [Unknown]
  - Dizziness [Unknown]
  - Injury [Unknown]
  - Fatigue [Unknown]
  - Dysphagia [Unknown]
  - Transient ischaemic attack [Unknown]
  - Fall [Unknown]
  - Dyspnoea [Unknown]
  - Facial paralysis [Unknown]
  - Muscular weakness [Recovered/Resolved]
